FAERS Safety Report 6924096-8 (Version None)
Quarter: 2010Q3

REPORT INFORMATION
  Report Type: 
  Country: None (occurrence: None)
  Receive Date: 20100813
  Receipt Date: 20100805
  Transmission Date: 20110219
  Serious: Yes (Life-Threatening, Hospitalization)
  Sender: FDA-Public Use
  Company Number: US-AMGEN-KDC429333

PATIENT
  Age: 68 Year
  Sex: Male

DRUGS (9)
  1. ENBREL [Suspect]
     Indication: GRAFT VERSUS HOST DISEASE
     Dates: start: 20100521
  2. TACROLIMUS [Concomitant]
  3. BUDESONIDE [Concomitant]
  4. UNSPECIFIED STEROIDS [Concomitant]
  5. DAPTOMYCIN [Concomitant]
  6. VORICONAZOLE [Concomitant]
  7. LEVOFLOXACIN [Concomitant]
  8. ACYCLOVIR [Concomitant]
  9. GANCICLOVIR [Concomitant]
     Dates: start: 20100725

REACTIONS (1)
  - RESPIRATORY FAILURE [None]
